FAERS Safety Report 8198904-X (Version None)
Quarter: 2012Q1

REPORT INFORMATION
  Report Type: 
  Country: None (occurrence: None)
  Receive Date: 20120309
  Receipt Date: 20120222
  Transmission Date: 20120608
  Serious: No
  Sender: FDA-Public Use
  Company Number: US-AMGEN-USASP2012008808

PATIENT
  Age: 80 Year
  Sex: Female
  Weight: 59.41 kg

DRUGS (3)
  1. PROLIA [Suspect]
     Indication: OSTEOPOROSIS POSTMENOPAUSAL
     Dosage: 60 MG, Q6MO
     Dates: start: 20120123
  2. FISH OIL [Concomitant]
  3. OSCAL                              /00514701/ [Concomitant]
     Dosage: UNK UNK, QD

REACTIONS (7)
  - BONE PAIN [None]
  - INJECTION SITE PAIN [None]
  - BACK PAIN [None]
  - RASH [None]
  - INSOMNIA [None]
  - PAIN IN EXTREMITY [None]
  - MUSCLE SPASMS [None]
